FAERS Safety Report 5450537-1 (Version None)
Quarter: 2007Q3

REPORT INFORMATION
  Report Type: 
  Country: None (occurrence: None)
  Receive Date: 20070806
  Receipt Date: 20060906
  Transmission Date: 20080115
  Serious: Yes (Other)
  Sender: FDA-Public Use
  Company Number: 29950

PATIENT
  Age: 59 Year
  Sex: Male

DRUGS (5)
  1. MIDAZOLAM HCL [Suspect]
     Indication: SEDATION
     Dosage: 1MG/IV BOLUS
     Route: 040
     Dates: start: 20060823
  2. MIDAZOLAM HCL [Suspect]
  3. MIDAZOLAM HCL [Suspect]
  4. FENTANYL [Concomitant]
  5. FENTANYL [Concomitant]

REACTIONS (1)
  - DRUG INEFFECTIVE [None]
